FAERS Safety Report 8000102-7 (Version None)
Quarter: 2011Q4

REPORT INFORMATION
  Report Type: 
  Country: None (occurrence: None)
  Receive Date: 20111222
  Receipt Date: 20111209
  Transmission Date: 20120403
  Serious: Yes (Hospitalization, Other)
  Sender: FDA-Public Use
  Company Number: FI-ELI_LILLY_AND_COMPANY-FI201110002485

PATIENT
  Sex: Female

DRUGS (3)
  1. PAMOL [Concomitant]
     Indication: PAIN
  2. CALCIUM D [Concomitant]
     Indication: MINERAL SUPPLEMENTATION
  3. FORTEO [Suspect]
     Indication: OSTEOPOROSIS
     Dosage: 20 UG, QD
     Dates: start: 20110330, end: 20111013

REACTIONS (11)
  - DEHYDRATION [None]
  - RENAL FAILURE [None]
  - HYPERCALCAEMIA [None]
  - GASTROINTESTINAL HAEMORRHAGE [None]
  - ADVERSE EVENT [None]
  - MALNUTRITION [None]
  - POLYURIA [None]
  - FATIGUE [None]
  - ASTHENIA [None]
  - ANAEMIA [None]
  - EATING DISORDER [None]
